FAERS Safety Report 5804424-7 (Version None)
Quarter: 2008Q3

REPORT INFORMATION
  Report Type: 
  Country: None (occurrence: None)
  Receive Date: 20080702
  Receipt Date: 20070628
  Transmission Date: 20090109
  Serious: Yes (Other)
  Sender: FDA-Public Use
  Company Number: HQWYE876902JUL07

PATIENT
  Age: 87 Year
  Sex: Female
  Weight: 60.84 kg

DRUGS (9)
  1. ADVIL [Suspect]
     Indication: ARTHRITIS
     Dosage: 1 TO 2 TABLETS TWICE DAILY, ORAL
     Route: 048
     Dates: start: 20070627, end: 20070627
  2. ADVIL [Suspect]
     Indication: SCIATICA
     Dosage: 1 TO 2 TABLETS TWICE DAILY, ORAL
     Route: 048
     Dates: start: 20070627, end: 20070627
  3. BEANO (ALPHA-D-GALACTOSIDASE) [Concomitant]
  4. TEMAZEPAM [Concomitant]
  5. HYDROCHLOROTHIAZIDE [Concomitant]
  6. ATENOLOL [Concomitant]
  7. PRILOSEC [Concomitant]
  8. NORVASC [Concomitant]
  9. LORAZEPAM [Concomitant]

REACTIONS (2)
  - CHEST PAIN [None]
  - DRUG INEFFECTIVE [None]
